FAERS Safety Report 24293233 (Version 1)
Quarter: 2024Q3

REPORT INFORMATION
  Report Type: Spontaneous
  Country: US (occurrence: None)
  Receive Date: 20240906
  Receipt Date: 20240906
  Transmission Date: 20241017
  Serious: No
  Sender: DOMPE FARMACEUTICI
  Company Number: US-FARMAPROD-202312-3625

PATIENT
  Age: 44 Year
  Sex: Female

DRUGS (6)
  1. OXERVATE [Suspect]
     Active Substance: CENEGERMIN-BKBJ
     Indication: Neurotrophic keratopathy
     Route: 047
     Dates: start: 20231205
  2. OXERVATE [Suspect]
     Active Substance: CENEGERMIN-BKBJ
  3. FISH OIL [Concomitant]
     Active Substance: FISH OIL
     Dosage: 100-160 MILLIGRAM
  4. ACYCLOVIR [Concomitant]
     Active Substance: ACYCLOVIR
  5. SYSTANE COMPLETE PF [Concomitant]
     Active Substance: PROPYLENE GLYCOL
  6. VALACYCLOVIR [Concomitant]
     Active Substance: VALACYCLOVIR HYDROCHLORIDE

REACTIONS (6)
  - Device use issue [Unknown]
  - Product administration error [Unknown]
  - Headache [Recovering/Resolving]
  - Eye pain [Recovering/Resolving]
  - Ear pain [Unknown]
  - Fatigue [Unknown]

NARRATIVE: CASE EVENT DATE: 20231205
